FAERS Safety Report 6635199-X (Version None)
Quarter: 2010Q1

REPORT INFORMATION
  Report Type: 
  Country: None (occurrence: None)
  Receive Date: 20100312
  Receipt Date: 20100312
  Transmission Date: 20100710
  Serious: Yes (Hospitalization)
  Sender: FDA-Public Use
  Company Number: None

PATIENT
  Age: 59 Year
  Sex: Male
  Weight: 70 kg

DRUGS (1)
  1. METOCLOPRAMIDE 10 MG  REGLAN  1 BEFORE MEALS  DAILY + AT BEDTIME [Suspect]
     Indication: IRRITABLE BOWEL SYNDROME
     Dosage: 1 BEFORE MEALS DAILY + BEDTIME
     Dates: start: 20090430, end: 20100218

REACTIONS (4)
  - ANXIETY [None]
  - DEPRESSION [None]
  - MEDICATION ERROR [None]
  - TARDIVE DYSKINESIA [None]
